FAERS Safety Report 16535133 (Version 1)
Quarter: 2019Q3

REPORT INFORMATION
  Report Type: Spontaneous
  Country: US (occurrence: US)
  Receive Date: 20190705
  Receipt Date: 20190705
  Transmission Date: 20191004
  Serious: Yes (Life-Threatening, Hospitalization)
  Sender: FDA-Public Use
  Company Number: US-SCIEGEN PHARMACEUTICALS INC-2019SCILIT00210

PATIENT
  Age: 12 Year
  Sex: Male

DRUGS (7)
  1. LORAZEPAM. [Interacting]
     Active Substance: LORAZEPAM
  2. FOSPHENYTOIN [Interacting]
     Active Substance: FOSPHENYTOIN
  3. LISDEXAMPHETAMINE [Concomitant]
     Active Substance: LISDEXAMFETAMINE
  4. ISOPROTERENOL. [Interacting]
     Active Substance: ISOPROTERENOL
  5. NOREPINEPHRINE. [Interacting]
     Active Substance: NOREPINEPHRINE
  6. BUPROPION HYDROCHLORIDE. [Suspect]
     Active Substance: BUPROPION HYDROCHLORIDE
  7. LEVETIRACETAM. [Interacting]
     Active Substance: LEVETIRACETAM

REACTIONS (7)
  - Tachyarrhythmia [Unknown]
  - Overdose [Unknown]
  - Seizure [Unknown]
  - Cardiac arrest [Unknown]
  - Torsade de pointes [Unknown]
  - Cardiogenic shock [Unknown]
  - Toxicity to various agents [Unknown]
